FAERS Safety Report 7941124-1 (Version None)
Quarter: 2011Q4

REPORT INFORMATION
  Report Type: 
  Country: None (occurrence: None)
  Receive Date: 20111128
  Receipt Date: 20111102
  Transmission Date: 20120403
  Serious: No
  Sender: FDA-Public Use
  Company Number: US-BAYER-2011-110159

PATIENT
  Sex: Male

DRUGS (6)
  1. ASPIRIN [Concomitant]
  2. LISINOPRIL [Concomitant]
  3. SARGRAMOSTIM [Suspect]
     Indication: LYMPHOMA
  4. SIMVASTATIN [Concomitant]
  5. CARBAMAZEPINE [Concomitant]
  6. SARGRAMOSTIM [Suspect]
     Indication: BASAL CELL CARCINOMA
     Route: 058

REACTIONS (1)
  - PAIN IN EXTREMITY [None]
